FAERS Safety Report 7146599-6 (Version None)
Quarter: 2010Q4

REPORT INFORMATION
  Report Type: 
  Country: None (occurrence: None)
  Receive Date: 20101208
  Receipt Date: 20101203
  Transmission Date: 20110411
  Serious: No
  Sender: FDA-Public Use
  Company Number: US-PFIZER INC-2010164132

PATIENT
  Sex: Female
  Weight: 60.771 kg

DRUGS (3)
  1. AZITHROMYCIN [Suspect]
     Dosage: 250 MG, 2X/DAY
     Route: 048
  2. AZITHROMYCIN [Suspect]
     Indication: SINUSITIS
     Dosage: 250 MG, DAILY
     Route: 048
     Dates: start: 20101201
  3. SYNTHROID [Concomitant]
     Dosage: UNK

REACTIONS (4)
  - DIZZINESS [None]
  - DRUG INTOLERANCE [None]
  - MALAISE [None]
  - SEDATION [None]
